FAERS Safety Report 7756328-0 (Version None)
Quarter: 2011Q3

REPORT INFORMATION
  Report Type: 
  Country: None (occurrence: None)
  Receive Date: 20110916
  Receipt Date: 20110907
  Transmission Date: 20111222
  Serious: Yes (Hospitalization)
  Sender: FDA-Public Use
  Company Number: DE-SANOFI-AVENTIS-2011SA048110

PATIENT
  Age: 54 Year
  Sex: Female
  Weight: 80.3 kg

DRUGS (13)
  1. LEUCOVORIN CALCIUM [Suspect]
     Dosage: FREQUENCY: MQ
     Route: 042
  2. LEUCOVORIN CALCIUM [Suspect]
     Route: 042
     Dates: start: 20110816
  3. RAMIPRIL [Concomitant]
     Dates: start: 20080101
  4. BEVACIZUMAB [Suspect]
     Dosage: FREQUENCY; MQ
     Route: 042
     Dates: start: 20110816
  5. DEXAMETHASONE [Concomitant]
     Route: 042
     Dates: start: 20110816, end: 20110819
  6. BEVACIZUMAB [Suspect]
     Dosage: FREQUENCY; MQ
     Route: 042
     Dates: start: 20101214
  7. FLUOROURACIL [Suspect]
     Dosage: FREQUENCY: MQ
     Route: 042
     Dates: start: 20101214
  8. DEXAMETHASONE [Concomitant]
     Dates: start: 20101214, end: 20101217
  9. LEVOTHYROXINE/POTASSIUM IODIDE [Concomitant]
     Dates: start: 20050101
  10. FLUOROURACIL [Suspect]
     Dosage: FREQUENCY: MQ
     Route: 042
     Dates: start: 20101214
  11. BEVACIZUMAB [Suspect]
     Route: 042
     Dates: start: 20101214
  12. ALOXI [Concomitant]
     Dates: start: 20101214, end: 20101214
  13. OXALIPLATIN [Suspect]
     Dosage: FREQUENCY: MQ
     Route: 042
     Dates: start: 20101214

REACTIONS (3)
  - PROCEDURAL SITE REACTION [None]
  - POST PROCEDURAL HAEMORRHAGE [None]
  - GASTROINTESTINAL STOMA COMPLICATION [None]
